FAERS Safety Report 4609960-7 (Version None)
Quarter: 2005Q1

REPORT INFORMATION
  Report Type: 
  Country: None (occurrence: None)
  Receive Date: 20050314
  Receipt Date: 20050222
  Transmission Date: 20050727
  Serious: Yes (Death, Hospitalization)
  Sender: FDA-Public Use
  Company Number: 10386

PATIENT
  Age: 83 Year
  Sex: Male

DRUGS (3)
  1. METHOTREXATE [Suspect]
     Indication: AUTOIMMUNE DISORDER
     Dosage: 10 MG ONCE, IV
     Route: 042
     Dates: start: 20041113, end: 20041113
  2. PREDNISONE [Concomitant]
  3. UNSPECIFIED ANTIBIOTIC [Concomitant]

REACTIONS (2)
  - PNEUMONITIS [None]
  - THROMBOCYTOPENIA [None]
